FAERS Safety Report 5515302-5 (Version None)
Quarter: 2007Q4

REPORT INFORMATION
  Report Type: 
  Country: None (occurrence: None)
  Receive Date: 20071113
  Receipt Date: 20071025
  Transmission Date: 20080405
  Serious: No
  Sender: FDA-Public Use
  Company Number: US-BOEHRINGER INGELHEIM PHARMACEUTICALS, INC.-2007-BP-23457BP

PATIENT
  Age: 44 Year
  Sex: Male

DRUGS (2)
  1. FLOMAX [Suspect]
     Route: 048
     Dates: start: 20071001, end: 20071001
  2. IBUPROFEN [Concomitant]

REACTIONS (3)
  - DIZZINESS [None]
  - MALAISE [None]
  - SOMNOLENCE [None]
